FAERS Safety Report 11831287 (Version 1)
Quarter: 2015Q4

REPORT INFORMATION
  Report Type: Spontaneous
  Country: GB (occurrence: GB)
  Receive Date: 20151214
  Receipt Date: 20151214
  Transmission Date: 20160305
  Serious: Yes (Disabling)
  Sender: FDA-Public Use
  Company Number: GB-WATSON-2015-27183

PATIENT
  Age: 42 Year
  Sex: Female
  Weight: 65 kg

DRUGS (4)
  1. LEVOTHYROXINE. [Concomitant]
     Active Substance: LEVOTHYROXINE
     Indication: PRODUCT USED FOR UNKNOWN INDICATION
     Dosage: 1 DF, DAILY
     Route: 065
     Dates: start: 20150715
  2. SERTRALINE [Suspect]
     Active Substance: SERTRALINE HYDROCHLORIDE
     Indication: PRODUCT USED FOR UNKNOWN INDICATION
     Dosage: UNK
     Route: 065
     Dates: start: 20151027
  3. SUMATRIPTAN. [Concomitant]
     Active Substance: SUMATRIPTAN
     Indication: PRODUCT USED FOR UNKNOWN INDICATION
     Dosage: UNK (AS DIRECTED)
     Route: 065
     Dates: start: 20150715
  4. TOPIRAMATE. [Concomitant]
     Active Substance: TOPIRAMATE
     Indication: PRODUCT USED FOR UNKNOWN INDICATION
     Dosage: UNK (INITIALLY, TRY 1 CAPSULE AT NIGHT FOR ONE WEE...)
     Route: 065
     Dates: start: 20151005, end: 20151104

REACTIONS (2)
  - Oromandibular dystonia [Recovered/Resolved]
  - Bruxism [Recovered/Resolved]

NARRATIVE: CASE EVENT DATE: 20151102
